FAERS Safety Report 5487115-4 (Version None)
Quarter: 2007Q4

REPORT INFORMATION
  Report Type: 
  Country: None (occurrence: None)
  Receive Date: 20071016
  Receipt Date: 20071005
  Transmission Date: 20080405
  Serious: Yes (Hospitalization)
  Sender: FDA-Public Use
  Company Number: CH-ROCHE-523548

PATIENT
  Age: 28 Year
  Sex: Male

DRUGS (2)
  1. ROACCUTAN [Suspect]
     Indication: ACNE
     Dosage: INDICATION REPORTED: OTHER ACNE.
     Route: 048
     Dates: start: 19900926, end: 19901031
  2. ROACCUTAN [Suspect]
     Route: 048
     Dates: start: 19901101, end: 19901201

REACTIONS (2)
  - CHEST PAIN [None]
  - CORONARY ARTERY DISEASE [None]
